FAERS Safety Report 15088300 (Version 1)
Quarter: 2018Q2

REPORT INFORMATION
  Report Type: Report from Study
  Country: JP (occurrence: JP)
  Receive Date: 20180629
  Receipt Date: 20180629
  Transmission Date: 20180711
  Serious: Yes (Other)
  Sender: FDA-Public Use
  Company Number: JP-TEVA-2018-JP-919193

PATIENT
  Age: 67 Year
  Sex: Male
  Weight: 52 kg

DRUGS (8)
  1. FLUOROURACIL. [Suspect]
     Active Substance: FLUOROURACIL
     Indication: COLORECTAL CANCER METASTATIC
     Dosage: RECEIVED AS FIRST LINE TREATMENT.
     Route: 065
  2. PANITUMUMAB [Concomitant]
     Active Substance: PANITUMUMAB
     Indication: COLORECTAL CANCER METASTATIC
     Dosage: AS FIRST LINE TREATMENT
     Route: 065
  3. OXALIPLATIN. [Concomitant]
     Active Substance: OXALIPLATIN
     Indication: COLORECTAL CANCER METASTATIC
     Dosage: RECEIVED AS FIRST LINE TREATMENT.
     Route: 065
  4. FLUOROURACIL. [Suspect]
     Active Substance: FLUOROURACIL
     Indication: COLORECTAL CANCER METASTATIC
     Dosage: RECEIVED AS SECOND LINE TREATMENT. CHANGE WAS MADE IN ADMINISTRATION INTERVAL TO EVERY 3 WEEKS.
     Route: 065
  5. FOLINIC ACID [Suspect]
     Active Substance: LEUCOVORIN
     Indication: COLORECTAL CANCER METASTATIC
     Dosage: RECEIVED AS SECOND LINE TREATMENT. CHANGE WAS MADE IN ADMINISTRATION INTERVAL TO EVERY 3 WEEKS.
     Route: 065
  6. IRINOTECAN [Suspect]
     Active Substance: IRINOTECAN
     Indication: COLORECTAL CANCER METASTATIC
     Dosage: RECEIVED AS SECOND LINE TREATMENT. CHANGE WAS MADE IN ADMINISTRATION INTERVAL TO EVERY 3 WEEKS.
     Route: 065
  7. RAMUCIRUMAB [Suspect]
     Active Substance: RAMUCIRUMAB
     Indication: COLORECTAL CANCER METASTATIC
     Dosage: RECEIVED AS SECOND LINE TREATMENT. CHANGE WAS MADE IN ADMINISTRATION INTERVAL TO EVERY 3 WEEKS.
     Route: 065
  8. FOLINIC ACID [Suspect]
     Active Substance: LEUCOVORIN
     Indication: COLORECTAL CANCER METASTATIC
     Dosage: RECEIVED AS FIRST LINE TREATMENT.
     Route: 065

REACTIONS (3)
  - Hypertension [Unknown]
  - Epistaxis [Unknown]
  - Febrile neutropenia [Unknown]
